FAERS Safety Report 20454484 (Version 1)
Quarter: 2022Q1

REPORT INFORMATION
  Report Type: Report from Study
  Country: US (occurrence: US)
  Receive Date: 20220210
  Receipt Date: 20220210
  Transmission Date: 20220423
  Serious: Yes (Other)
  Sender: FDA-Public Use
  Company Number: US-UCBSA-2022005475

PATIENT
  Sex: Female

DRUGS (1)
  1. CERTOLIZUMAB PEGOL [Suspect]
     Active Substance: CERTOLIZUMAB PEGOL
     Indication: Crohn^s disease
     Dosage: 400 MILLIGRAM, EV 4 WEEKS
     Dates: start: 2016, end: 2018

REACTIONS (4)
  - Infected fistula [Unknown]
  - Crohn^s disease [Unknown]
  - Abscess [Unknown]
  - Therapy cessation [Unknown]

NARRATIVE: CASE EVENT DATE: 20180101
